FAERS Safety Report 8780333 (Version 1)
Quarter: 2012Q4

REPORT INFORMATION
  Report Type: Spontaneous
  Country: US (occurrence: None)
  Receive Date: 20120905
  Receipt Date: 20120905
  Transmission Date: 20130627
  Serious: No
  Sender: FDA-Public Use
  Company Number: None

PATIENT
  Age: 64 Year
  Sex: Male

DRUGS (2)
  1. RIBAPAK [Suspect]
     Route: 048
     Dates: start: 20120723, end: 20120810
  2. PEGPASYS [Suspect]
     Dates: start: 20120723, end: 20120810

REACTIONS (6)
  - Chills [None]
  - Insomnia [None]
  - Influenza like illness [None]
  - Pyrexia [None]
  - Dyspnoea [None]
  - Convulsion [None]
